FAERS Safety Report 11259869 (Version 1)
Quarter: 2015Q3

REPORT INFORMATION
  Report Type: Spontaneous
  Country: US (occurrence: US)
  Receive Date: 20150710
  Receipt Date: 20150710
  Transmission Date: 20151125
  Serious: No
  Sender: FDA-Public Use
  Company Number: US-PURDUE-USA-2014-0118490

PATIENT
  Age: 49 Year
  Sex: Male

DRUGS (1)
  1. BUTRANS [Suspect]
     Active Substance: BUPRENORPHINE
     Indication: PAIN
     Dosage: 10 MCG/HR, WEEKLY
     Route: 062
     Dates: start: 201406

REACTIONS (9)
  - Drug withdrawal syndrome [Recovered/Resolved]
  - Product odour abnormal [Unknown]
  - Tremor [Recovered/Resolved]
  - Feeling abnormal [Recovered/Resolved]
  - Application site rash [Recovered/Resolved]
  - Product physical issue [Unknown]
  - Drug effect decreased [Unknown]
  - Application site pruritus [Recovered/Resolved]
  - Product adhesion issue [Unknown]

NARRATIVE: CASE EVENT DATE: 201406
